FAERS Safety Report 14253361 (Version 1)
Quarter: 2017Q4

REPORT INFORMATION
  Report Type: Spontaneous
  Country: RU (occurrence: RU)
  Receive Date: 20171206
  Receipt Date: 20171206
  Transmission Date: 20180321
  Serious: Yes (Death)
  Sender: FDA-Public Use
  Company Number: RU-ASTRAZENECA-2017SF22627

PATIENT
  Age: 41 Year
  Sex: Male

DRUGS (1)
  1. BRILINTA [Suspect]
     Active Substance: TICAGRELOR
     Indication: MYOCARDIAL INFARCTION
     Route: 048
     Dates: start: 20151023, end: 20171115

REACTIONS (4)
  - Intentional product misuse [Unknown]
  - Myocardial infarction [Fatal]
  - Off label use [Unknown]
  - Product use issue [Unknown]
